FAERS Safety Report 9261000 (Version 1)
Quarter: 2013Q2

REPORT INFORMATION
  Report Type: Spontaneous
  Country: US (occurrence: US)
  Receive Date: 20130429
  Receipt Date: 20130429
  Transmission Date: 20140414
  Serious: No
  Sender: FDA-Public Use
  Company Number: US-AMGEN-USASP2012061057

PATIENT
  Age: 73 Year
  Sex: Female

DRUGS (11)
  1. SENSIPAR [Suspect]
     Indication: HYPERPARATHYROIDISM SECONDARY
     Dosage: 30 MG, QD
     Dates: start: 2012
  2. WARFARIN [Concomitant]
     Dosage: UNK UNK, QD
  3. HYDROCHLOROTHIAZIDE [Concomitant]
     Dosage: UNK UNK, QD
  4. DIGOXIN [Concomitant]
     Dosage: UNK UNK, QD
  5. SIMVASTATIN [Concomitant]
     Dosage: UNK UNK, QD
  6. BENICAR [Concomitant]
     Dosage: UNK UNK, QD
  7. BABY ASPIRIN [Concomitant]
     Dosage: UNK UNK, QD
  8. PEPCID                             /00706001/ [Concomitant]
     Dosage: UNK UNK, BID
  9. SYNTHROID [Concomitant]
     Dosage: UNK UNK, QD
  10. METOPROLOL [Concomitant]
     Dosage: UNK UNK, BID
  11. TYLENOL                            /00020001/ [Concomitant]
     Indication: ARTHRITIS
     Dosage: UNK UNK, PRN

REACTIONS (1)
  - Alopecia [Not Recovered/Not Resolved]
